FAERS Safety Report 19415833 (Version 1)
Quarter: 2021Q2

REPORT INFORMATION
  Report Type: Report from Study
  Country: US (occurrence: US)
  Receive Date: 20210615
  Receipt Date: 20210615
  Transmission Date: 20210717
  Serious: Yes (Other)
  Sender: FDA-Public Use
  Company Number: US-GILEAD-2021-0535542

PATIENT
  Sex: Female

DRUGS (15)
  1. DOXYCYCLINE HYCLATE. [Concomitant]
     Active Substance: DOXYCYCLINE HYCLATE
  2. ALBUTEROL SULFATE. [Concomitant]
     Active Substance: ALBUTEROL SULFATE
  3. PULMOZYME [Concomitant]
     Active Substance: DORNASE ALFA
  4. FLUTICASONE PROPIONATE. [Concomitant]
     Active Substance: FLUTICASONE PROPIONATE
  5. QVAR [Concomitant]
     Active Substance: BECLOMETHASONE DIPROPIONATE
  6. VITAMIN D [VITAMIN D NOS] [Concomitant]
     Active Substance: VITAMIN D NOS
  7. CIPRO [Concomitant]
     Active Substance: CIPROFLOXACIN HYDROCHLORIDE
  8. VITAMIN K [Concomitant]
     Active Substance: PHYTONADIONE
  9. CALCIUM [Concomitant]
     Active Substance: CALCIUM
  10. AZITHROMYCIN ANHYDROUS. [Concomitant]
     Active Substance: AZITHROMYCIN ANHYDROUS
  11. AZTREONAM LYSINE [Suspect]
     Active Substance: AZTREONAM LYSINE
     Indication: CYSTIC FIBROSIS
     Dosage: 75 MG, TID, CONTINIOUSLY
     Route: 055
  12. VITAMIN C [Concomitant]
     Active Substance: ASCORBIC ACID
  13. PREDNISONE. [Concomitant]
     Active Substance: PREDNISONE
  14. VITAMINS NOS [Concomitant]
     Active Substance: VITAMINS
  15. HYPERSAL [Concomitant]
     Active Substance: SODIUM CHLORIDE

REACTIONS (2)
  - Cystic fibrosis [Unknown]
  - Off label use [Not Recovered/Not Resolved]
